FAERS Safety Report 7989415-2 (Version None)
Quarter: 2011Q4

REPORT INFORMATION
  Report Type: 
  Country: None (occurrence: None)
  Receive Date: 20111219
  Receipt Date: 20111213
  Transmission Date: 20120403
  Serious: Yes (Life-Threatening)
  Sender: FDA-Public Use
  Company Number: FR-SANOFI-AVENTIS-2011SA081381

PATIENT
  Age: 85 Year
  Sex: Female

DRUGS (6)
  1. LOVENOX [Suspect]
     Route: 042
     Dates: start: 20110819, end: 20111003
  2. SECTRAL [Concomitant]
     Route: 048
  3. ASPIRIN [Concomitant]
     Route: 048
  4. NEXIUM [Concomitant]
     Route: 048
  5. NITRODERM [Concomitant]
     Route: 062
  6. NITROGLYCERIN [Concomitant]

REACTIONS (2)
  - CARDIAC ARREST [None]
  - RESPIRATORY DISTRESS [None]
